FAERS Safety Report 21982985 (Version 1)
Quarter: 2023Q1

REPORT INFORMATION
  Report Type: Spontaneous
  Country: TW (occurrence: TW)
  Receive Date: 20230213
  Receipt Date: 20230213
  Transmission Date: 20230418
  Serious: Yes (Other)
  Sender: FDA-Public Use
  Company Number: TW-SUN PHARMACEUTICAL INDUSTRIES LTD-2023RR-376502

PATIENT
  Age: 72 Year
  Sex: Male

DRUGS (12)
  1. ASPIRIN [Suspect]
     Active Substance: ASPIRIN
     Indication: Retinal artery occlusion
     Dosage: UNK
     Route: 065
  2. ASPIRIN [Suspect]
     Active Substance: ASPIRIN
     Indication: Retinal vein occlusion
  3. ASPIRIN [Suspect]
     Active Substance: ASPIRIN
     Indication: Macular detachment
  4. PREDNISOLONE [Suspect]
     Active Substance: PREDNISOLONE
     Indication: Macular detachment
     Dosage: 1 G/KG, DAILY
     Route: 048
  5. PREDNISOLONE [Suspect]
     Active Substance: PREDNISOLONE
     Indication: Retinal artery occlusion
  6. PREDNISOLONE [Suspect]
     Active Substance: PREDNISOLONE
     Indication: Retinal vein occlusion
  7. METHYLPREDNISOLONE [Suspect]
     Active Substance: METHYLPREDNISOLONE
     Indication: Macular detachment
     Dosage: 1 GRAM, DAILY
     Route: 042
  8. METHYLPREDNISOLONE [Suspect]
     Active Substance: METHYLPREDNISOLONE
     Indication: Retinal artery occlusion
  9. METHYLPREDNISOLONE [Suspect]
     Active Substance: METHYLPREDNISOLONE
     Indication: Retinal vein occlusion
  10. aflibercept EYLEA [Concomitant]
     Indication: Retinal artery occlusion
     Dosage: 2 MG/0.05ML, UNK
  11. aflibercept EYLEA [Concomitant]
     Indication: Retinal vein occlusion
  12. aflibercept EYLEA [Concomitant]
     Indication: Macular detachment

REACTIONS (1)
  - Therapy partial responder [Unknown]
